FAERS Safety Report 5577015-3 (Version None)
Quarter: 2007Q4

REPORT INFORMATION
  Report Type: 
  Country: None (occurrence: None)
  Receive Date: 20071228
  Receipt Date: 20071218
  Transmission Date: 20080405
  Serious: Yes (Hospitalization)
  Sender: FDA-Public Use
  Company Number: FR-AVENTIS-200714068FR

PATIENT
  Age: 76 Year
  Sex: Female

DRUGS (5)
  1. TRIATEC                            /00885601/ [Suspect]
     Route: 048
     Dates: start: 20050815
  2. DAONIL FAIBLE 1.25 MG [Suspect]
     Route: 048
     Dates: start: 20050815
  3. GLUCOPHAGE [Suspect]
     Route: 048
     Dates: start: 20050815
  4. KERLONE                            /00706301/ [Suspect]
     Route: 048
     Dates: start: 20050815
  5. ELISOR [Suspect]
     Route: 048
     Dates: start: 20060815

REACTIONS (1)
  - PEMPHIGUS [None]
